FAERS Safety Report 6484983-4 (Version None)
Quarter: 2009Q4

REPORT INFORMATION
  Report Type: 
  Country: None (occurrence: None)
  Receive Date: 20091203
  Receipt Date: 20091102
  Transmission Date: 20100525
  Serious: No
  Sender: FDA-Public Use
  Company Number: 2009SP033612

PATIENT
  Age: 22 Year
  Sex: Female

DRUGS (1)
  1. ELOCON [Suspect]
     Indication: DERMATITIS
     Dates: start: 20090801

REACTIONS (3)
  - DRUG LABEL CONFUSION [None]
  - EYE IRRITATION [None]
  - INCORRECT ROUTE OF DRUG ADMINISTRATION [None]
